FAERS Safety Report 21378707 (Version 3)
Quarter: 2023Q1

REPORT INFORMATION
  Report Type: Report from Study
  Country: US (occurrence: US)
  Receive Date: 20220927
  Receipt Date: 20230118
  Transmission Date: 20230417
  Serious: Yes (Death, Other)
  Sender: FDA-Public Use
  Company Number: US-ACADIA PHARMACEUTICALS INC.-ACA-2022-PIM-002999

PATIENT
  Age: 75 Year
  Sex: Male

DRUGS (3)
  1. NUPLAZID [Suspect]
     Active Substance: PIMAVANSERIN TARTRATE
     Indication: Parkinson^s disease psychosis
     Dosage: 34 MILLIGRAM, QD
     Route: 048
     Dates: start: 202101, end: 20230102
  2. ESCITALOPRAM OXALATE [Concomitant]
     Active Substance: ESCITALOPRAM OXALATE
  3. IMMUNE SUPPORT [Concomitant]

REACTIONS (4)
  - Death [Fatal]
  - Communication disorder [Recovered/Resolved]
  - Dementia [Unknown]
  - Surgery [Unknown]

NARRATIVE: CASE EVENT DATE: 20230102
